FAERS Safety Report 16084800 (Version 1)
Quarter: 2019Q1

REPORT INFORMATION
  Report Type: Spontaneous
  Country: US (occurrence: US)
  Receive Date: 20190318
  Receipt Date: 20190318
  Transmission Date: 20190418
  Serious: No
  Sender: FDA-Public Use
  Company Number: US-AVADEL SPECIALTY PHARMACEUTICALS, LLC-2019AVA00045

PATIENT
  Sex: Male

DRUGS (1)
  1. NOCTIVA [Suspect]
     Active Substance: DESMOPRESSIN ACETATE
     Dosage: UNK

REACTIONS (6)
  - Headache [Recovered/Resolved]
  - Cough [Recovered/Resolved]
  - Nasal discomfort [Recovered/Resolved]
  - Insomnia [Recovered/Resolved]
  - Unevaluable event [Recovered/Resolved]
  - Lacrimation increased [Recovered/Resolved]
